FAERS Safety Report 5389851-7 (Version None)
Quarter: 2007Q3

REPORT INFORMATION
  Report Type: 
  Country: None (occurrence: None)
  Receive Date: 20070718
  Receipt Date: 20070709
  Transmission Date: 20080115
  Serious: Yes (Hospitalization)
  Sender: FDA-Public Use
  Company Number: PHBS2007JP11482

PATIENT
  Age: 63 Year
  Sex: Female

DRUGS (4)
  1. NOVOLIN R [Suspect]
     Indication: DIABETES MELLITUS
     Dates: start: 20070326
  2. NATEGLINIDE [Suspect]
     Indication: DIABETES MELLITUS
     Dosage: 90 MG, TID
     Route: 048
     Dates: start: 20070318, end: 20070326
  3. BASEN [Suspect]
     Indication: DIABETES MELLITUS
     Dosage: 0.2 MG, BID
     Route: 048
     Dates: start: 20070312, end: 20070315
  4. MIGLITOL [Suspect]
     Indication: DIABETES MELLITUS
     Dosage: 50 MG, BID
     Dates: start: 20070315, end: 20070318

REACTIONS (8)
  - ALANINE AMINOTRANSFERASE INCREASED [None]
  - ASPARTATE AMINOTRANSFERASE INCREASED [None]
  - BLOOD ALKALINE PHOSPHATASE INCREASED [None]
  - BLOOD GLUCOSE FLUCTUATION [None]
  - BLOOD LACTATE DEHYDROGENASE INCREASED [None]
  - GAMMA-GLUTAMYLTRANSFERASE INCREASED [None]
  - HEPATIC FUNCTION ABNORMAL [None]
  - HEPATOCELLULAR DAMAGE [None]
